FAERS Safety Report 15348470 (Version 1)
Quarter: 2018Q3

REPORT INFORMATION
  Report Type: Report from Study
  Country: BR (occurrence: BR)
  Receive Date: 20180904
  Receipt Date: 20180904
  Transmission Date: 20181010
  Serious: Yes (Death, Hospitalization)
  Sender: FDA-Public Use
  Company Number: BR-BAYER-2018-086605

PATIENT
  Age: 55 Year
  Sex: Male

DRUGS (8)
  1. NEBILET [Concomitant]
     Active Substance: NEBIVOLOL
     Indication: HYPERTENSION
     Dosage: 1 DF, QD
     Route: 048
  2. AMLODIPINE BESILATE W/ OLMESARTAN MEDOXOMIL [Concomitant]
     Active Substance: AMLODIPINE BESYLATE\OLMESARTAN MEDOXOMIL
     Indication: HYPERTENSION
     Dosage: 1 DF, BID
     Route: 048
  3. NEXAVAR [Suspect]
     Active Substance: SORAFENIB
     Indication: HEPATOCELLULAR CARCINOMA
     Dosage: 600 MG, QD
     Route: 048
     Dates: start: 20180430
  4. NEXAVAR [Suspect]
     Active Substance: SORAFENIB
     Indication: HEPATOCELLULAR CARCINOMA
     Dosage: 400 MG, QD
     Route: 048
     Dates: start: 201803
  5. INDAPEN [Concomitant]
     Active Substance: INDAPAMIDE
     Indication: HYPERTENSION
     Dosage: 1 DF, QD
     Route: 048
  6. ENTECAVIR. [Concomitant]
     Active Substance: ENTECAVIR
     Indication: HEPATITIS B
     Dosage: 1 DF, QD
     Route: 048
     Dates: start: 2012
  7. NEXAVAR [Suspect]
     Active Substance: SORAFENIB
     Indication: HEPATOCELLULAR CARCINOMA
     Dosage: 800 MG, QD
     Route: 048
     Dates: end: 20180429
  8. ATORVASTATIN [Concomitant]
     Active Substance: ATORVASTATIN
     Indication: DIABETES MELLITUS MANAGEMENT

REACTIONS (26)
  - Dyspnoea exertional [None]
  - Off label use [None]
  - Liver disorder [Fatal]
  - Anuria [Fatal]
  - Feeling cold [Recovered/Resolved]
  - Genital rash [Recovered/Resolved]
  - Erectile dysfunction [None]
  - Skin exfoliation [Recovered/Resolved]
  - Pain of skin [Recovered/Resolved]
  - Renal failure [None]
  - Pyrexia [Recovered/Resolved]
  - Back pain [None]
  - Asthenia [None]
  - Memory impairment [Recovered/Resolved]
  - Drug hypersensitivity [None]
  - Skin wound [Recovered/Resolved]
  - Pruritus [Not Recovered/Not Resolved]
  - Feeling hot [Recovered/Resolved]
  - Blood pressure increased [Recovered/Resolved]
  - Influenza [Recovered/Resolved]
  - Weight decreased [None]
  - Chills [Recovered/Resolved]
  - Rash [Recovering/Resolving]
  - Renal disorder [Fatal]
  - Urinary tract infection [None]
  - Diarrhoea [None]

NARRATIVE: CASE EVENT DATE: 2018
